FAERS Safety Report 7370610-0 (Version None)
Quarter: 2011Q1

REPORT INFORMATION
  Report Type: 
  Country: None (occurrence: None)
  Receive Date: 20110323
  Receipt Date: 20110310
  Transmission Date: 20110831
  Serious: Yes (Hospitalization, Other)
  Sender: FDA-Public Use
  Company Number: DE-ACTELION-A-US2011-46612

PATIENT

DRUGS (1)
  1. VENTAVIS [Suspect]
     Dosage: 2.5 UG, QID
     Route: 055
     Dates: start: 20100820

REACTIONS (1)
  - INTESTINAL HAEMORRHAGE [None]
